FAERS Safety Report 21744747 (Version 1)
Quarter: 2022Q4

REPORT INFORMATION
  Report Type: Report from Study
  Country: US (occurrence: US)
  Receive Date: 20221219
  Receipt Date: 20221219
  Transmission Date: 20230113
  Serious: No
  Sender: FDA-Public Use
  Company Number: US-ABBVIE-4196679

PATIENT
  Age: 38 Year
  Sex: Female

DRUGS (4)
  1. RINVOQ [Suspect]
     Active Substance: UPADACITINIB
     Indication: Product used for unknown indication
     Route: 048
     Dates: start: 20221102
  2. Moderna [Concomitant]
     Indication: COVID-19 immunisation
     Route: 030
     Dates: start: 202103, end: 202103
  3. Moderna [Concomitant]
     Indication: COVID-19 immunisation
     Route: 030
     Dates: start: 202104, end: 202104
  4. Moderna [Concomitant]
     Indication: COVID-19 immunisation
     Route: 030
     Dates: start: 202111, end: 202111

REACTIONS (4)
  - Abdominal pain upper [Not Recovered/Not Resolved]
  - Vomiting [Not Recovered/Not Resolved]
  - Headache [Not Recovered/Not Resolved]
  - Skin discolouration [Unknown]

NARRATIVE: CASE EVENT DATE: 20221101
